FAERS Safety Report 5222260-X (Version None)
Quarter: 2007Q1

REPORT INFORMATION
  Report Type: 
  Country: None (occurrence: None)
  Receive Date: 20070129
  Receipt Date: 20070122
  Transmission Date: 20070707
  Serious: Yes (Death, Life-Threatening, Hospitalization, Disabling)
  Sender: FDA-Public Use
  Company Number: JP-AVENTIS-200613511JP

PATIENT
  Age: 69 Year
  Sex: Female

DRUGS (6)
  1. LASIX [Suspect]
     Indication: ASCITES
     Route: 048
     Dates: start: 20061003, end: 20061123
  2. TAKEPRON [Suspect]
     Indication: GASTRIC ULCER
     Route: 048
     Dates: start: 20061004, end: 20061111
  3. ALDACTAZIDE-A [Concomitant]
     Indication: ASCITES
     Route: 048
     Dates: start: 20061003, end: 20061123
  4. LIVACT [Concomitant]
     Indication: HYPOALBUMINAEMIA
     Route: 048
     Dates: start: 20061016, end: 20061111
  5. SOLDACTONE [Concomitant]
     Route: 051
  6. FULUVAMIDE [Concomitant]
     Route: 051

REACTIONS (12)
  - ALANINE AMINOTRANSFERASE INCREASED [None]
  - ASCITES [None]
  - ASPARTATE AMINOTRANSFERASE INCREASED [None]
  - CONDITION AGGRAVATED [None]
  - DEPRESSED LEVEL OF CONSCIOUSNESS [None]
  - HAEMORRHOIDAL HAEMORRHAGE [None]
  - HEPATIC FAILURE [None]
  - HEPATIC FUNCTION ABNORMAL [None]
  - LYMPHOCYTE STIMULATION TEST POSITIVE [None]
  - MALAISE [None]
  - MELAENA [None]
  - SHOCK [None]
